FAERS Safety Report 5840533-4 (Version None)
Quarter: 2008Q3

REPORT INFORMATION
  Report Type: 
  Country: None (occurrence: None)
  Receive Date: 20080731
  Receipt Date: 20080511
  Transmission Date: 20090109
  Serious: No
  Sender: FDA-Public Use
  Company Number: US200805002157

PATIENT
  Age: 72 Year
  Sex: Male

DRUGS (6)
  1. BYETTA [Suspect]
     Indication: TYPE 2 DIABETES MELLITUS
     Dosage: 5 UG, 2/D, SUBCUTANEOUS; 10 UG, 2/D, SUBCUTANTOUS
     Route: 058
     Dates: start: 20080311, end: 20080509
  2. BYETTA [Suspect]
     Indication: TYPE 2 DIABETES MELLITUS
     Dosage: 5 UG, 2/D, SUBCUTANEOUS; 10 UG, 2/D, SUBCUTANTOUS
     Route: 058
     Dates: start: 20080510
  3. BYETTA [Suspect]
  4. DRUG USED IN DIABETES [Concomitant]
  5. GLUCOPHAGE /USA/(METFORMIN HYDROCHLORIDE) [Concomitant]
  6. ACIPHEX [Concomitant]

REACTIONS (6)
  - ABDOMINAL PAIN UPPER [None]
  - BLOOD GLUCOSE INCREASED [None]
  - DIARRHOEA [None]
  - GLYCOSYLATED HAEMOGLOBIN INCREASED [None]
  - NAUSEA [None]
  - VOMITING [None]
